FAERS Safety Report 7405413-1 (Version None)
Quarter: 2011Q2

REPORT INFORMATION
  Report Type: 
  Country: None (occurrence: None)
  Receive Date: 20110411
  Receipt Date: 20110404
  Transmission Date: 20111010
  Serious: Yes (Other)
  Sender: FDA-Public Use
  Company Number: BR-US-EMD SERONO, INC.-7012104

PATIENT
  Sex: Female

DRUGS (4)
  1. DIOSMIN [Concomitant]
  2. CAPTOPRIL [Concomitant]
  3. TRIPTANOL [Concomitant]
  4. REBIF [Suspect]
     Indication: RELAPSING-REMITTING MULTIPLE SCLEROSIS
     Route: 058
     Dates: start: 20020306

REACTIONS (3)
  - WOUND INFECTION [None]
  - OEDEMA PERIPHERAL [None]
  - WOUND NECROSIS [None]
